FAERS Safety Report 11012603 (Version 1)
Quarter: 2015Q2

REPORT INFORMATION
  Report Type: Spontaneous
  Country: US (occurrence: None)
  Receive Date: 20150410
  Receipt Date: 20150410
  Transmission Date: 20150821
  Serious: No
  Sender: FDA-Public Use
  Company Number: None

PATIENT
  Age: 63 Year
  Sex: Female
  Weight: 117.94 kg

DRUGS (2)
  1. ACETAMINOPHEN. [Concomitant]
     Active Substance: ACETAMINOPHEN
  2. XARELTO [Suspect]
     Active Substance: RIVAROXABAN
     Indication: POSTOPERATIVE CARE
     Dosage: 1/DAY WITH DINNER ONCE DAILY TAKEN BY MOUTH
     Route: 048
     Dates: start: 20150106, end: 20150324

REACTIONS (8)
  - Musculoskeletal stiffness [None]
  - Swelling [None]
  - Abdominal discomfort [None]
  - Pain [None]
  - Pain in extremity [None]
  - Headache [None]
  - Arthralgia [None]
  - Sleep disorder [None]
